FAERS Safety Report 12273368 (Version 1)
Quarter: 2016Q2

REPORT INFORMATION
  Report Type: Spontaneous
  Country: CH (occurrence: CH)
  Receive Date: 20160415
  Receipt Date: 20160415
  Transmission Date: 20160815
  Serious: Yes (Hospitalization)
  Sender: FDA-Public Use
  Company Number: CH-JNJFOC-20160410963

PATIENT
  Age: 74 Year
  Sex: Male

DRUGS (16)
  1. ATORVASTATIN [Concomitant]
     Active Substance: ATORVASTATIN
     Route: 065
     Dates: start: 201602
  2. PLAVIX [Suspect]
     Active Substance: CLOPIDOGREL BISULFATE
     Indication: CORONARY ARTERY DISEASE
     Route: 065
     Dates: start: 20160119
  3. ALDACTONE A [Concomitant]
     Active Substance: SPIRONOLACTONE
     Route: 065
  4. EUTHYROX [Concomitant]
     Active Substance: LEVOTHYROXINE SODIUM
     Route: 065
     Dates: start: 201601
  5. LEVEMIR [Concomitant]
     Active Substance: INSULIN DETEMIR
     Route: 065
  6. MOVICOL [Concomitant]
     Active Substance: POLYETHYLENE GLYCOL 3350\POTASSIUM CHLORIDE\SODIUM BICARBONATE\SODIUM CHLORIDE
     Route: 065
  7. ESCITALOPRAM [Suspect]
     Active Substance: ESCITALOPRAM OXALATE
     Indication: ANTIDEPRESSANT THERAPY
     Route: 065
     Dates: start: 201602
  8. PROGRAF [Concomitant]
     Active Substance: TACROLIMUS\TACROLIMUS ANHYDROUS
     Route: 065
     Dates: start: 2001
  9. QUETIAPINE FUMARATE. [Concomitant]
     Active Substance: QUETIAPINE FUMARATE
     Route: 065
     Dates: start: 20160221
  10. ZYLORIC [Concomitant]
     Active Substance: ALLOPURINOL
     Route: 065
  11. TRIATEC [Concomitant]
     Active Substance: RAMIPRIL
     Route: 065
  12. TOREM [Concomitant]
     Active Substance: TORSEMIDE
     Route: 065
     Dates: start: 201512
  13. CONCOR [Concomitant]
     Active Substance: BISOPROLOL FUMARATE
     Route: 065
     Dates: start: 201512
  14. XARELTO [Suspect]
     Active Substance: RIVAROXABAN
     Indication: PRODUCT USED FOR UNKNOWN INDICATION
     Route: 048
     Dates: start: 201512, end: 20160222
  15. ACETYLSALICYLIC ACID [Suspect]
     Active Substance: ASPIRIN
     Indication: CORONARY ARTERY DISEASE
     Route: 065
     Dates: start: 20151212
  16. PANTOZOL [Concomitant]
     Active Substance: PANTOPRAZOLE SODIUM
     Route: 065

REACTIONS (3)
  - Potentiating drug interaction [Recovered/Resolved]
  - Haematuria [Recovered/Resolved]
  - Bladder tamponade [Recovered/Resolved]

NARRATIVE: CASE EVENT DATE: 20160221
